FAERS Safety Report 9277209 (Version 1)
Quarter: 2013Q2

REPORT INFORMATION
  Report Type: Spontaneous
  Country: US (occurrence: US)
  Receive Date: 20130508
  Receipt Date: 20130508
  Transmission Date: 20140414
  Serious: No
  Sender: FDA-Public Use
  Company Number: US-009507513-1305USA000658

PATIENT
  Age: 70 Year
  Sex: Female

DRUGS (3)
  1. EMEND [Suspect]
     Indication: PROPHYLAXIS OF NAUSEA AND VOMITING
     Dosage: 125 MG, QD, DAY 1
     Route: 048
     Dates: start: 201304
  2. EMEND [Suspect]
     Indication: PROPHYLAXIS OF NAUSEA AND VOMITING
     Dosage: 80 MG, QD DAY 2
     Dates: start: 201304
  3. EMEND [Suspect]
     Dosage: 80 MG, QD DAY 3
     Dates: start: 201304

REACTIONS (1)
  - Tooth disorder [Unknown]
